FAERS Safety Report 22161703 (Version 2)
Quarter: 2023Q2

REPORT INFORMATION
  Report Type: Spontaneous
  Country: US (occurrence: None)
  Receive Date: 20230331
  Receipt Date: 20230509
  Transmission Date: 20230722
  Serious: No
  Sender: FDA-Public Use
  Company Number: 2023A062431

PATIENT
  Age: 614 Month
  Sex: Female
  Weight: 83.9 kg

DRUGS (1)
  1. BYDUREON BCISE [Suspect]
     Active Substance: EXENATIDE
     Indication: Diabetes mellitus
     Route: 058
     Dates: start: 202109

REACTIONS (2)
  - Alopecia [Unknown]
  - Device leakage [Unknown]

NARRATIVE: CASE EVENT DATE: 20211101
